FAERS Safety Report 5178811-7 (Version None)
Quarter: 2006Q4

REPORT INFORMATION
  Report Type: 
  Country: None (occurrence: None)
  Receive Date: 20061208
  Receipt Date: 20061127
  Transmission Date: 20070319
  Serious: Yes (Other)
  Sender: FDA-Public Use
  Company Number: 2006145669

PATIENT
  Age: 5 Day
  Sex: Male
  Weight: 4.0824 kg

DRUGS (1)
  1. ZOLOFT [Suspect]
     Dosage: 50 MG (50 MG)
     Dates: end: 20060101

REACTIONS (7)
  - CHOKING [None]
  - DRUG EXPOSURE DURING PREGNANCY [None]
  - INFANTILE APNOEIC ATTACK [None]
  - JAUNDICE NEONATAL [None]
  - NEONATAL DISORDER [None]
  - RETCHING [None]
  - SINUSITIS [None]
